FAERS Safety Report 24761213 (Version 2)
Quarter: 2025Q2

REPORT INFORMATION
  Report Type: Spontaneous
  Country: CN (occurrence: CN)
  Receive Date: 20241220
  Receipt Date: 20250609
  Transmission Date: 20250717
  Serious: Yes (Hospitalization)
  Sender: RANBAXY
  Company Number: CN-SUN PHARMACEUTICAL INDUSTRIES LTD-2024R1-484694

PATIENT
  Age: 22 Year
  Sex: Male
  Weight: 60 kg

DRUGS (4)
  1. PALIPERIDONE [Suspect]
     Active Substance: PALIPERIDONE
     Indication: Mental disorder
     Dosage: 6 MILLIGRAM, QD
     Route: 048
     Dates: start: 20240919, end: 20240925
  2. PALIPERIDONE [Suspect]
     Active Substance: PALIPERIDONE
     Dosage: 9 MILLIGRAM, QD
     Route: 048
     Dates: start: 20240925, end: 20241014
  3. PALIPERIDONE [Suspect]
     Active Substance: PALIPERIDONE
     Dosage: 3 MILLIGRAM, QD
     Route: 048
     Dates: start: 20241017, end: 20241020
  4. TRIHEXYPHENIDYL HYDROCHLORIDE [Concomitant]
     Active Substance: TRIHEXYPHENIDYL HYDROCHLORIDE
     Indication: Product used for unknown indication
     Dosage: 2 MILLIGRAM, QD
     Route: 048
     Dates: start: 20240922, end: 20241119

REACTIONS (1)
  - Transaminases increased [Recovered/Resolved]

NARRATIVE: CASE EVENT DATE: 20241004
